FAERS Safety Report 8110905-6 (Version None)
Quarter: 2012Q1

REPORT INFORMATION
  Report Type: 
  Country: None (occurrence: None)
  Receive Date: 20120201
  Receipt Date: 20120201
  Transmission Date: 20120608
  Serious: No
  Sender: FDA-Public Use
  Company Number: None

PATIENT
  Sex: Female
  Weight: 91.173 kg

DRUGS (2)
  1. VENLAFAXINE HCL EXTENDED-RELEASE [Suspect]
     Indication: DEPRESSION
     Dosage: 75 MG 3 TABS QD PO
     Route: 048
     Dates: start: 20110101, end: 20110101
  2. VENLAFAXINE HCL EXTENDED-RELEASE [Suspect]
     Indication: ANXIETY
     Dosage: 75 MG 3 TABS QD PO
     Route: 048
     Dates: start: 20110101, end: 20110101

REACTIONS (1)
  - THERAPEUTIC RESPONSE DECREASED [None]
